FAERS Safety Report 7366887-8 (Version None)
Quarter: 2011Q1

REPORT INFORMATION
  Report Type: 
  Country: None (occurrence: None)
  Receive Date: 20110322
  Receipt Date: 20110315
  Transmission Date: 20110831
  Serious: Yes (Other)
  Sender: FDA-Public Use
  Company Number: A0919035A

PATIENT
  Sex: Female

DRUGS (3)
  1. ABILIFY [Suspect]
     Indication: BIPOLAR DISORDER
     Route: 065
  2. LAMICTAL [Suspect]
     Indication: BIPOLAR DISORDER
     Route: 065
  3. DEPAKOTE [Suspect]
     Indication: BIPOLAR DISORDER
     Route: 065

REACTIONS (3)
  - WEIGHT INCREASED [None]
  - DIABETES MELLITUS [None]
  - DRUG INEFFECTIVE [None]
